FAERS Safety Report 10945580 (Version 1)
Quarter: 2015Q1

REPORT INFORMATION
  Report Type: Spontaneous
  Country: FR (occurrence: None)
  Receive Date: 20150319
  Receipt Date: 20150319
  Transmission Date: 20150721
  Serious: Yes (Hospitalization)
  Sender: FDA-Public Use
  Company Number: 2783320

PATIENT
  Age: 8 Year
  Sex: Female
  Weight: 22 kg

DRUGS (9)
  1. ETOPOPHOS [Suspect]
     Active Substance: ETOPOSIDE PHOSPHATE
     Indication: CHEMOTHERAPY
     Dosage: (NOT OTHERWISE SPECIFIED)
     Route: 042
     Dates: start: 20141124, end: 20141126
  2. UROMITEXAN [Concomitant]
     Active Substance: MESNA
  3. ZOPHREN [Concomitant]
     Active Substance: ONDANSETRON
  4. VINCRISTINE SULFATE. [Suspect]
     Active Substance: VINCRISTINE SULFATE
     Indication: CHEMOTHERAPY
     Dosage: (NOT OTHERWISE SPECIFIED)
     Route: 042
     Dates: start: 20141124, end: 20141124
  5. CAELYX [Suspect]
     Active Substance: DOXORUBICIN HYDROCHLORIDE
     Indication: CHEMOTHERAPY
     Dates: start: 20141124, end: 20141126
  6. VOGALENE [Concomitant]
     Active Substance: METOPIMAZINE
  7. BIONOLYTE [Concomitant]
     Active Substance: UNSPECIFIED INGREDIENT
  8. SOLU-MEDROL [Concomitant]
     Active Substance: METHYLPREDNISOLONE SODIUM SUCCINATE
  9. IFOSFAMIDE. [Suspect]
     Active Substance: IFOSFAMIDE
     Indication: CHEMOTHERAPY
     Dosage: (NOT OTHERWISE SPECIFIED)
     Route: 042
     Dates: start: 20141124, end: 20141126

REACTIONS (2)
  - Febrile bone marrow aplasia [None]
  - Adverse reaction [None]

NARRATIVE: CASE EVENT DATE: 20141204
